FAERS Safety Report 6910476-3 (Version None)
Quarter: 2010Q3

REPORT INFORMATION
  Report Type: 
  Country: None (occurrence: None)
  Receive Date: 20100806
  Receipt Date: 20100730
  Transmission Date: 20110219
  Serious: Yes (Other)
  Sender: FDA-Public Use
  Company Number: KR-ASTRAZENECA-2010SE35623

PATIENT
  Age: 67 Year
  Sex: Female
  Weight: 72 kg

DRUGS (10)
  1. PROPOFOL [Suspect]
     Indication: INDUCTION OF ANAESTHESIA
     Route: 042
  2. SEVOFLURANE [Suspect]
     Indication: MAINTENANCE OF ANAESTHESIA
  3. REMIFENTANIL [Suspect]
     Indication: INDUCTION OF ANAESTHESIA
     Dosage: 2 MG/KG
     Route: 042
  4. REMIFENTANIL [Suspect]
     Indication: MAINTENANCE OF ANAESTHESIA
     Dosage: 2 MG/KG
     Route: 042
  5. REMIFENTANIL [Suspect]
     Dosage: 1.0-2.0 MG/H
     Route: 042
  6. REMIFENTANIL [Suspect]
     Dosage: 1.0-2.0 MG/H
     Route: 042
  7. MIDAZOLAM HCL [Concomitant]
     Indication: PREMEDICATION
     Route: 030
  8. GLYCOPYRROLATE [Concomitant]
     Indication: PREMEDICATION
     Route: 042
  9. ROCURONIUM BROMIDE [Concomitant]
  10. OXYGEN [Concomitant]

REACTIONS (2)
  - GRAND MAL CONVULSION [None]
  - STRESS CARDIOMYOPATHY [None]
